FAERS Safety Report 6124692-4 (Version None)
Quarter: 2009Q1

REPORT INFORMATION
  Report Type: 
  Country: None (occurrence: None)
  Receive Date: 20090319
  Receipt Date: 20090316
  Transmission Date: 20090719
  Serious: Yes (Death)
  Sender: FDA-Public Use
  Company Number: ZA-ABBOTT-08P-143-0471613-00

PATIENT
  Sex: Female
  Weight: 62.8 kg

DRUGS (9)
  1. RITONAVIR SOFT GELATIN CAPSULES [Suspect]
     Indication: HIV INFECTION
     Route: 048
     Dates: start: 20080813, end: 20080818
  2. DARUNAVIR [Concomitant]
     Indication: HIV INFECTION
     Route: 048
     Dates: start: 20080813, end: 20080818
  3. TRUVADA [Concomitant]
     Indication: HIV INFECTION
     Dosage: 300/200
     Route: 048
     Dates: start: 20080813, end: 20080818
  4. AZT [Concomitant]
     Indication: HIV INFECTION
     Route: 048
     Dates: start: 20080813, end: 20080818
  5. VITAMIN BCO [Concomitant]
     Indication: PROPHYLAXIS
     Route: 048
     Dates: start: 20080813, end: 20080828
  6. FOLIC ACID [Concomitant]
     Indication: ANAEMIA
     Route: 048
     Dates: start: 20080813, end: 20080828
  7. FERROUS SULFATE TAB [Concomitant]
     Indication: ANAEMIA
     Route: 048
     Dates: start: 20080813, end: 20080828
  8. DEPO-PROVERA [Concomitant]
     Indication: CONTRACEPTION
     Route: 030
     Dates: start: 20080813, end: 20080828
  9. DAPSONE [Concomitant]
     Indication: PROPHYLAXIS
     Dates: start: 20050101, end: 20080828

REACTIONS (2)
  - BICYTOPENIA [None]
  - SEPSIS [None]
